FAERS Safety Report 4273718-1 (Version None)
Quarter: 2004Q1

REPORT INFORMATION
  Report Type: 
  Country: None (occurrence: None)
  Receive Date: 20040119
  Receipt Date: 20031204
  Transmission Date: 20041129
  Serious: Yes (Hospitalization)
  Sender: FDA-Public Use
  Company Number: GB-ROCHE-353270

PATIENT
  Age: 56 Year
  Sex: Female
  Weight: 68.4 kg

DRUGS (14)
  1. CAPECITABINE [Suspect]
     Dosage: INTERMITTENT THERAPY OF THREE WEEKS TREATMENT AND ONE WEEK REST
     Route: 048
     Dates: start: 20030922, end: 20031118
  2. CAPECITABINE [Suspect]
     Dosage: INTERMITTENT THERAPY OF THREE WEEKS TREATMENT AND ONE WEEK REST
     Route: 048
  3. GEMCITABINE [Suspect]
     Dosage: GIVEN ON DAY ONE AND EIGHT OF A THREE WEEK CYCLE.
     Route: 042
     Dates: start: 20030922, end: 20031028
  4. GEMCITABINE [Suspect]
     Route: 042
     Dates: start: 20031028, end: 20031118
  5. GEMCITABINE [Suspect]
     Dosage: TAKEN ON DAYS 1, 8 AND 15 OF A 21 DAY CYCLE
     Route: 042
  6. TROPISETRON [Concomitant]
     Route: 042
     Dates: start: 20030922
  7. DEXAMETHASONE [Concomitant]
     Route: 042
     Dates: start: 20030922
  8. ZANTAC [Concomitant]
     Indication: DYSPEPSIA
     Route: 048
     Dates: start: 20030904
  9. TRAMADOL HCL [Concomitant]
     Indication: PAIN
     Route: 048
     Dates: start: 20031116
  10. FRAGMIN [Concomitant]
     Route: 058
     Dates: start: 20031112
  11. DOLASETRON [Concomitant]
     Route: 042
     Dates: start: 20031125
  12. ACETAMINOPHEN [Concomitant]
     Indication: PAIN
     Route: 048
  13. RANITIDINE [Concomitant]
     Route: 048
     Dates: start: 20031117
  14. DALTEPARIN [Concomitant]
     Dates: start: 20031117

REACTIONS (6)
  - ABDOMINAL PAIN [None]
  - CONSTIPATION [None]
  - DEEP VEIN THROMBOSIS [None]
  - DYSPNOEA EXERTIONAL [None]
  - HYPERCALCAEMIA [None]
  - PYREXIA [None]
